FAERS Safety Report 6404786-6 (Version None)
Quarter: 2009Q4

REPORT INFORMATION
  Report Type: 
  Country: None (occurrence: None)
  Receive Date: 20091016
  Receipt Date: 20091008
  Transmission Date: 20100525
  Serious: Yes (Hospitalization)
  Sender: FDA-Public Use
  Company Number: PHHO2009CA12503

PATIENT
  Sex: Male
  Weight: 52.3 kg

DRUGS (1)
  1. RAD 666 RAD+TAB+PTR [Suspect]
     Indication: HEART TRANSPLANT
     Dosage: 1.0 MG, BID
     Route: 048
     Dates: start: 20090710

REACTIONS (2)
  - SEROMA [None]
  - SURGERY [None]
